FAERS Safety Report 13124999 (Version 1)
Quarter: 2017Q1

REPORT INFORMATION
  Report Type: Report from Study
  Country: US (occurrence: US)
  Receive Date: 20170118
  Receipt Date: 20170118
  Transmission Date: 20170428
  Serious: Yes (Other)
  Sender: FDA-Public Use
  Company Number: US-ROCHE-1863101

PATIENT
  Age: 82 Year
  Sex: Male
  Weight: 105.78 kg

DRUGS (14)
  1. OXYGEN 100% [Concomitant]
     Dosage: ONGOING:YES
     Route: 045
  2. OXYGEN 100% [Concomitant]
     Dosage: ONGOING:YES
     Route: 045
  3. DILTIAZEM. [Concomitant]
     Active Substance: DILTIAZEM
     Dosage: TAKING FOR A COUPLE OF YEARS;ONGOING:YES
     Route: 048
  4. ESBRIET [Suspect]
     Active Substance: PIRFENIDONE
     Dosage: 2 CAPSULES THREE TIMES PER DAY
     Route: 048
     Dates: start: 201701, end: 201701
  5. SYNTHROID [Concomitant]
     Active Substance: LEVOTHYROXINE SODIUM
     Dosage: TAKING FOR 5 YEARS; ONGOING:YES
     Route: 048
  6. ESBRIET [Suspect]
     Active Substance: PIRFENIDONE
     Dosage: 2 PILLS WITH BREAKFAST
     Route: 048
     Dates: start: 20170116
  7. FLOMAX [Concomitant]
     Active Substance: TAMSULOSIN HYDROCHLORIDE
     Route: 048
     Dates: start: 2006
  8. DETROL [Concomitant]
     Active Substance: TOLTERODINE TARTRATE
     Route: 065
     Dates: start: 2006
  9. TRAMADOL. [Concomitant]
     Active Substance: TRAMADOL
     Indication: PAIN
     Dosage: TAKING 6-7 YEARS AS NEEDED FOR PAIN;ONGOING:YES
     Route: 048
  10. SPIRIVA [Concomitant]
     Active Substance: TIOTROPIUM BROMIDE MONOHYDRATE
     Dosage: TAKING FOR A COUPLE OF YEARS:ONGOING:YES
     Route: 055
  11. FLUTICASONE PROPIONATE. [Concomitant]
     Active Substance: FLUTICASONE PROPIONATE
     Dosage: TAKING 3-4 YEARS,2 SPRAYS NOSTRIL DAY.
     Route: 045
  12. IBUPROFEN. [Concomitant]
     Active Substance: IBUPROFEN
     Indication: ARTHRITIS
     Dosage: TAKING FOR 10 YEARS;ONGOING :YES
     Route: 048
  13. ROPINIROLE. [Concomitant]
     Active Substance: ROPINIROLE
     Indication: RESTLESS LEGS SYNDROME
     Dosage: TAKING FOR A COUPLE OF YEARS;ONGOING:YES
     Route: 048
  14. ESBRIET [Suspect]
     Active Substance: PIRFENIDONE
     Indication: IDIOPATHIC PULMONARY FIBROSIS
     Dosage: 2 CAPSULES 3 TIMES PER DAY
     Route: 048
     Dates: start: 20161117

REACTIONS (11)
  - Rash pruritic [Unknown]
  - Pneumonia [Not Recovered/Not Resolved]
  - Bronchitis [Not Recovered/Not Resolved]
  - Decreased appetite [Not Recovered/Not Resolved]
  - Condition aggravated [Recovered/Resolved with Sequelae]
  - Dyspnoea [Unknown]
  - Dyspnoea [Not Recovered/Not Resolved]
  - Lower respiratory tract congestion [Not Recovered/Not Resolved]
  - Drug ineffective [Unknown]
  - Pain [Not Recovered/Not Resolved]
  - Oxygen saturation decreased [Unknown]

NARRATIVE: CASE EVENT DATE: 201612
